FAERS Safety Report 16419688 (Version 1)
Quarter: 2019Q2

REPORT INFORMATION
  Report Type: Spontaneous
  Country: US (occurrence: US)
  Receive Date: 20190612
  Receipt Date: 20190612
  Transmission Date: 20190711
  Serious: Yes (Other)
  Sender: FDA-Public Use
  Company Number: US-PFIZER INC-2019246541

PATIENT
  Age: 54 Year
  Sex: Male

DRUGS (1)
  1. GABAPENTIN. [Suspect]
     Active Substance: GABAPENTIN
     Dosage: UNK

REACTIONS (9)
  - Drug ineffective [Unknown]
  - Fatigue [Unknown]
  - Bone density decreased [Unknown]
  - Rash [Unknown]
  - Parkinson^s disease [Unknown]
  - Visual impairment [Unknown]
  - Diarrhoea [Unknown]
  - Pollakiuria [Unknown]
  - Tremor [Unknown]
